FAERS Safety Report 6241866-2 (Version None)
Quarter: 2009Q2

REPORT INFORMATION
  Report Type: 
  Country: None (occurrence: None)
  Receive Date: 20090623
  Receipt Date: 20090611
  Transmission Date: 20091009
  Serious: Yes (Hospitalization)
  Sender: FDA-Public Use
  Company Number: GB-PFIZER INC-2009226193

PATIENT
  Age: 42 Year

DRUGS (3)
  1. SPIRONOLACTONE [Suspect]
     Indication: TRANSGENDER HORMONAL THERAPY
     Dosage: 200 MG, 1X/DAY
     Route: 062
  2. ESTRADIOL AND ESTRADIOL CIPIONATE [Suspect]
     Indication: TRANSGENDER HORMONAL THERAPY
     Dosage: 100 MG, 1X/DAY
     Route: 048
  3. ETHINYL ESTRADIOL TAB [Suspect]
     Indication: TRANSGENDER HORMONAL THERAPY
     Dosage: 30 UG, 1X/DAY
     Route: 048

REACTIONS (2)
  - OFF LABEL USE [None]
  - PULMONARY EMBOLISM [None]
